FAERS Safety Report 5422043-1 (Version None)
Quarter: 2007Q3

REPORT INFORMATION
  Report Type: 
  Country: None (occurrence: None)
  Receive Date: 20070820
  Receipt Date: 20070814
  Transmission Date: 20080115
  Serious: Yes (Life-Threatening, Hospitalization)
  Sender: FDA-Public Use
  Company Number: 2007SP002871

PATIENT
  Age: 18 Year
  Sex: Male

DRUGS (1)
  1. LUNESTA [Suspect]
     Dosage: ; ORAL
     Route: 048

REACTIONS (4)
  - ALCOHOL USE [None]
  - ASPIRATION [None]
  - COMA [None]
  - VOMITING [None]
